FAERS Safety Report 23277245 (Version 2)
Quarter: 2024Q4

REPORT INFORMATION
  Report Type: Spontaneous
  Country: US (occurrence: US)
  Receive Date: 20231208
  Receipt Date: 20241125
  Transmission Date: 20250114
  Serious: Yes (Other)
  Sender: AMERICAN REGENT
  Company Number: US-AMERICAN REGENT INC-2023002266

PATIENT
  Age: 26 Year
  Sex: Female

DRUGS (1)
  1. VENOFER [Suspect]
     Active Substance: IRON SUCROSE
     Indication: Iron deficiency anaemia
     Dosage: 100 MILLIGRAM, SINGLE
     Route: 042

REACTIONS (2)
  - Anaphylactic reaction [Recovering/Resolving]
  - Product complaint [Unknown]
